FAERS Safety Report 20992318 (Version 1)
Quarter: 2022Q2

REPORT INFORMATION
  Report Type: Report from Study
  Country: FR (occurrence: None)
  Receive Date: 20220622
  Receipt Date: 20220622
  Transmission Date: 20220721
  Serious: Yes (Death)
  Sender: FDA-Public Use
  Company Number: 2022A215080

PATIENT
  Age: 611 Month
  Sex: Female
  Weight: 79 kg

DRUGS (1)
  1. EVUSHELD [Suspect]
     Active Substance: CILGAVIMAB\TIXAGEVIMAB
     Indication: COVID-19
     Route: 030
     Dates: start: 20220309, end: 20220309

REACTIONS (1)
  - Non-Hodgkin^s lymphoma recurrent [Fatal]
